FAERS Safety Report 20423132 (Version 1)
Quarter: 2022Q1

REPORT INFORMATION
  Report Type: Spontaneous
  Country: CN (occurrence: CN)
  Receive Date: 20220203
  Receipt Date: 20220203
  Transmission Date: 20220424
  Serious: Yes (Hospitalization)
  Sender: FDA-Public Use
  Company Number: CN-PFIZER INC-202200144674

PATIENT
  Age: 79 Year
  Sex: Male
  Weight: 74.998 kg

DRUGS (3)
  1. SOLU-MEDROL [Suspect]
     Active Substance: METHYLPREDNISOLONE SODIUM SUCCINATE
     Indication: Dyspnoea
     Dosage: 40 MG, 1X/DAY
     Route: 042
     Dates: start: 20220107, end: 20220108
  2. SOLU-MEDROL [Suspect]
     Active Substance: METHYLPREDNISOLONE SODIUM SUCCINATE
     Indication: Inflammation
     Dosage: 20 MG, 1X/DAY
     Route: 042
     Dates: start: 20220109, end: 20220112
  3. SODIUM CHLORIDE [Concomitant]
     Active Substance: SODIUM CHLORIDE
     Dosage: 20 ML
     Route: 042
     Dates: start: 20220107, end: 20220112

REACTIONS (2)
  - Blood glucose increased [Recovering/Resolving]
  - Off label use [Unknown]

NARRATIVE: CASE EVENT DATE: 20220107
